FAERS Safety Report 8162939-3 (Version None)
Quarter: 2012Q1

REPORT INFORMATION
  Report Type: 
  Country: None (occurrence: None)
  Receive Date: 20120103
  Receipt Date: 20110921
  Transmission Date: 20120608
  Serious: Yes (Hospitalization, Other)
  Sender: FDA-Public Use
  Company Number: AE-2011-001420

PATIENT
  Age: 62 Year
  Sex: Female

DRUGS (3)
  1. PEGINTERFERON (PEGINTERFERON ALFA-2A) [Concomitant]
  2. INCIVEK [Suspect]
  3. RIBAVIRIN [Concomitant]

REACTIONS (1)
  - ANAEMIA [None]
